FAERS Safety Report 8281677-X (Version None)
Quarter: 2012Q2

REPORT INFORMATION
  Report Type: 
  Country: None (occurrence: None)
  Receive Date: 20120413
  Receipt Date: 20120404
  Transmission Date: 20120825
  Serious: Yes (Other)
  Sender: FDA-Public Use
  Company Number: CA-JNJFOC-20120402411

PATIENT
  Sex: Male
  Weight: 82 kg

DRUGS (9)
  1. CALCIUM CARBONATE [Concomitant]
     Route: 065
  2. COZAAR [Concomitant]
     Route: 065
  3. REMICADE [Suspect]
     Indication: CROHN'S DISEASE
     Route: 042
     Dates: start: 20020101
  4. MULTIVITE [Concomitant]
     Route: 065
  5. SEPTRA [Concomitant]
     Route: 065
  6. SALMON OIL [Concomitant]
     Route: 065
  7. IMURAN [Concomitant]
     Dosage: 3 TABS
     Route: 048
  8. PROBIOTIC [Concomitant]
     Route: 065
  9. PANTOPRAZOLE SODIUM [Concomitant]
     Route: 065

REACTIONS (1)
  - PARKINSONISM [None]
